FAERS Safety Report 8505590-5 (Version None)
Quarter: 2012Q3

REPORT INFORMATION
  Report Type: 
  Country: None (occurrence: None)
  Receive Date: 20120703
  Receipt Date: 20120618
  Transmission Date: 20120928
  Serious: Yes (Death, Life-Threatening, Hospitalization)
  Sender: FDA-Public Use
  Company Number: 2012SP029460

PATIENT
  Age: 37 Year
  Sex: Female
  Weight: 66.3 kg

DRUGS (5)
  1. RIBAVIRIN [Suspect]
     Indication: HEPATITIS C
     Dosage: 500 MG;Q12H;PO
     Route: 048
     Dates: start: 20120316, end: 20120527
  2. VICTRELIS [Suspect]
     Indication: HEPATITIS C
     Dosage: 800 MCG;Q8H;PO
     Route: 048
     Dates: start: 20120413, end: 20120527
  3. CLONAZEPAM [Concomitant]
  4. PEG-INTRON [Suspect]
     Indication: HEPATITIS C
     Dosage: 80 MCG;QW;SC
     Route: 058
     Dates: start: 20120316, end: 20120527
  5. SERTRALINE HYDROCHLORIDE [Concomitant]

REACTIONS (8)
  - APPARENT LIFE THREATENING EVENT [None]
  - INFLUENZA [None]
  - ACUTE RESPIRATORY FAILURE [None]
  - PANCYTOPENIA [None]
  - ANAEMIA [None]
  - DEPRESSION [None]
  - FIBROMYALGIA [None]
  - SEPTIC SHOCK [None]
